FAERS Safety Report 6101347-3 (Version None)
Quarter: 2009Q1

REPORT INFORMATION
  Report Type: 
  Country: None (occurrence: None)
  Receive Date: 20090303
  Receipt Date: 20090303
  Transmission Date: 20090719
  Serious: No
  Sender: FDA-Public Use
  Company Number: None

PATIENT
  Age: 24 Year
  Weight: 99.7913 kg

DRUGS (1)
  1. CREST PRO HEALTH MOUTH WASH REGULAR CREST [Suspect]
     Indication: DENTAL DISORDER PROPHYLAXIS
     Dosage: NORMAL RECOMMENDED DOSAGE TWICE DAILY PO
     Route: 048
     Dates: start: 20081201, end: 20090112

REACTIONS (2)
  - DYSGEUSIA [None]
  - TOOTH DISCOLOURATION [None]
